FAERS Safety Report 7389472-0 (Version None)
Quarter: 2011Q2

REPORT INFORMATION
  Report Type: 
  Country: None (occurrence: None)
  Receive Date: 20110401
  Receipt Date: 20110322
  Transmission Date: 20111010
  Serious: Yes (Hospitalization, Other)
  Sender: FDA-Public Use
  Company Number: US-PFIZER INC-2011022154

PATIENT
  Sex: Female

DRUGS (2)
  1. PRISTIQ [Suspect]
     Indication: MAJOR DEPRESSION
     Dosage: 100 MG, Q AM
     Route: 048
     Dates: start: 20080922, end: 20090913
  2. ACETYLSALICYLIC ACID [Concomitant]

REACTIONS (2)
  - CONTUSION [None]
  - EYE SWELLING [None]
